FAERS Safety Report 11534370 (Version 1)
Quarter: 2015Q3

REPORT INFORMATION
  Report Type: Spontaneous
  Country: US (occurrence: None)
  Receive Date: 20150921
  Receipt Date: 20150921
  Transmission Date: 20151125
  Serious: Yes (Hospitalization)
  Sender: FDA-Public Use
  Company Number: None

PATIENT
  Sex: Female

DRUGS (4)
  1. MEPHYTON [Concomitant]
     Active Substance: PHYTONADIONE
  2. COLISTIMETHATE [Concomitant]
     Active Substance: COLISTIMETHATE SODIUM
  3. TOBRAMYCIN. [Suspect]
     Active Substance: TOBRAMYCIN
  4. AQUADEKS MVI [Concomitant]

REACTIONS (1)
  - Condition aggravated [None]
